FAERS Safety Report 9897440 (Version 1)
Quarter: 2014Q1

REPORT INFORMATION
  Report Type: Spontaneous
  Country: FR (occurrence: FR)
  Receive Date: 20140214
  Receipt Date: 20140214
  Transmission Date: 20141002
  Serious: Yes (Hospitalization, Congenital Anomaly)
  Sender: FDA-Public Use
  Company Number: FR-JNJFOC-20140203209

PATIENT
  Age: 0 Day
  Sex: Male
  Weight: 2.38 kg

DRUGS (9)
  1. EPITOMAX [Suspect]
     Indication: EPILEPSY
     Route: 064
     Dates: end: 20131213
  2. ZONEGRAN [Suspect]
     Indication: EPILEPSY
     Route: 064
     Dates: end: 20131213
  3. TEGRETOL [Suspect]
     Indication: EPILEPSY
     Route: 064
     Dates: end: 20131213
  4. DIAZEPAM [Suspect]
     Indication: EPILEPSY
     Route: 064
     Dates: end: 20131213
  5. NOZINAN [Suspect]
     Indication: EPILEPSY
     Route: 064
     Dates: end: 20131213
  6. LAROXYL [Suspect]
     Indication: PRODUCT USED FOR UNKNOWN INDICATION
     Dosage: 12.5 MG - 12.5 MG - 25 MG IN A DAY
     Route: 064
     Dates: end: 20131213
  7. ATARAX [Suspect]
     Indication: PRODUCT USED FOR UNKNOWN INDICATION
     Route: 064
     Dates: end: 20131213
  8. NUREFLEX [Suspect]
     Indication: PRODUCT USED FOR UNKNOWN INDICATION
     Route: 064
     Dates: end: 20131113
  9. EUPANTOL [Suspect]
     Indication: PRODUCT USED FOR UNKNOWN INDICATION
     Route: 064
     Dates: end: 20131213

REACTIONS (5)
  - Respiratory distress [Recovered/Resolved]
  - Withdrawal syndrome [Recovered/Resolved]
  - Foetal growth restriction [Recovering/Resolving]
  - Retrognathia [Unknown]
  - Foetal exposure during pregnancy [Recovered/Resolved]
